FAERS Safety Report 11591105 (Version 1)
Quarter: 2015Q4

REPORT INFORMATION
  Report Type: Spontaneous
  Country: US (occurrence: US)
  Receive Date: 20151003
  Receipt Date: 20151003
  Transmission Date: 20160304
  Serious: Yes (Other)
  Sender: FDA-Public Use
  Company Number: US-HORIZON-PRE-0165-2015

PATIENT
  Age: 32 Year
  Sex: Female

DRUGS (1)
  1. PREDNISONE. [Suspect]
     Active Substance: PREDNISONE
     Indication: HERPES GESTATIONIS
     Dosage: 20 MG DAILY
     Route: 048

REACTIONS (3)
  - Gestational diabetes [Recovered/Resolved]
  - Mood altered [Recovered/Resolved]
  - Abnormal behaviour [Recovered/Resolved]
